FAERS Safety Report 13532254 (Version 5)
Quarter: 2017Q2

REPORT INFORMATION
  Report Type: Report from Study
  Country: IT (occurrence: IT)
  Receive Date: 20170510
  Receipt Date: 20170622
  Transmission Date: 20170830
  Serious: Yes (Other)
  Sender: FDA-Public Use
  Company Number: IT-TEVA-766419ACC

PATIENT
  Sex: Female

DRUGS (5)
  1. TAXOL [Suspect]
     Active Substance: PACLITAXEL
     Indication: METASTASES TO UTERUS
     Dosage: FIVE COURSES
     Route: 065
  2. CARBOPLATIN. [Suspect]
     Active Substance: CARBOPLATIN
     Indication: METASTASES TO UTERUS
     Dosage: FIVE COURSES
     Route: 065
  3. CARBOPLATIN. [Suspect]
     Active Substance: CARBOPLATIN
     Indication: OVARIAN CANCER METASTATIC
  4. CAELYX - JANSSEN-CILAG INTERNATIONAL N.V. [Suspect]
     Active Substance: DOXORUBICIN HYDROCHLORIDE
     Indication: OVARIAN CANCER METASTATIC
  5. CAELYX - JANSSEN-CILAG INTERNATIONAL N.V. [Suspect]
     Active Substance: DOXORUBICIN HYDROCHLORIDE
     Indication: METASTASES TO UTERUS
     Dosage: FIVE COURSES
     Route: 065

REACTIONS (1)
  - Gastrointestinal erosion [Unknown]
